FAERS Safety Report 6544312-4 (Version None)
Quarter: 2010Q1

REPORT INFORMATION
  Report Type: 
  Country: None (occurrence: None)
  Receive Date: 20100120
  Receipt Date: 20100114
  Transmission Date: 20100710
  Serious: Yes (Hospitalization)
  Sender: FDA-Public Use
  Company Number: US-ABBOTT-10P-163-0619686-00

PATIENT
  Sex: Male
  Weight: 121.67 kg

DRUGS (12)
  1. ZEMPLAR [Suspect]
     Indication: RENAL FAILURE CHRONIC
     Dosage: UNKNOWN
     Dates: start: 20080101
  2. NIFEDIPINE [Concomitant]
     Indication: RENAL FAILURE CHRONIC
  3. NIFEDIPINE [Concomitant]
     Indication: HYPERTENSION
  4. DOXAZOSIN MESYLATE [Concomitant]
     Indication: RENAL FAILURE CHRONIC
  5. DOXAZOSIN MESYLATE [Concomitant]
     Indication: HYPERTENSION
  6. CLONIDINE [Concomitant]
     Indication: RENAL FAILURE CHRONIC
  7. CLONIDINE [Concomitant]
     Indication: HYPERTENSION
  8. METOPROLOL [Concomitant]
     Indication: RENAL FAILURE CHRONIC
  9. METOPROLOL [Concomitant]
     Indication: HYPERTENSION
  10. GLYBURIDE [Concomitant]
     Indication: TYPE 2 DIABETES MELLITUS
     Dates: start: 20091201
  11. FUROSEMIDE [Concomitant]
     Indication: RENAL FAILURE CHRONIC
     Dates: start: 20091201
  12. FUROSEMIDE [Concomitant]
     Indication: HYPERTENSION

REACTIONS (5)
  - DYSPNOEA [None]
  - LUNG INFECTION [None]
  - PULMONARY OEDEMA [None]
  - SWELLING [None]
  - WEIGHT INCREASED [None]
